FAERS Safety Report 6039964-1 (Version None)
Quarter: 2009Q1

REPORT INFORMATION
  Report Type: 
  Country: None (occurrence: None)
  Receive Date: 20090116
  Receipt Date: 20071102
  Transmission Date: 20090719
  Serious: No
  Sender: FDA-Public Use
  Company Number: US-BRISTOL-MYERS SQUIBB COMPANY-13967849

PATIENT
  Age: 44 Year
  Sex: Male
  Weight: 100 kg

DRUGS (4)
  1. ABILIFY [Suspect]
     Indication: MENTAL DISORDER
     Route: 048
  2. XANAX [Concomitant]
  3. GABAPENTIN [Concomitant]
  4. BIOTIN [Concomitant]

REACTIONS (1)
  - INSOMNIA [None]
